FAERS Safety Report 5454786-8 (Version None)
Quarter: 2007Q3

REPORT INFORMATION
  Report Type: 
  Country: None (occurrence: None)
  Receive Date: 20070917
  Receipt Date: 20070831
  Transmission Date: 20080115
  Serious: No
  Sender: FDA-Public Use
  Company Number: US-BOEHRINGER INGELHEIM PHARMACEUTICALS, INC.-2007-BP-16759BP

PATIENT
  Sex: Female

DRUGS (5)
  1. CATAPRES-TTS-1 [Suspect]
     Indication: HYPERTENSION
     Route: 061
     Dates: start: 20070401, end: 20070702
  2. MENOSTAR [Concomitant]
     Route: 061
  3. ASPIRIN [Concomitant]
     Route: 048
  4. THYROID TAB [Concomitant]
  5. XALANTAN DROPS [Concomitant]

REACTIONS (1)
  - APPLICATION SITE RASH [None]
